FAERS Safety Report 5848270-7 (Version None)
Quarter: 2008Q3

REPORT INFORMATION
  Report Type: 
  Country: None (occurrence: None)
  Receive Date: 20080818
  Receipt Date: 20080814
  Transmission Date: 20090109
  Serious: Yes (Death)
  Sender: FDA-Public Use
  Company Number: SE-BRISTOL-MYERS SQUIBB COMPANY-14303259

PATIENT
  Age: 52 Year
  Sex: Male

DRUGS (3)
  1. CEFEPIME [Suspect]
     Indication: PYREXIA
  2. VANCOMYCIN [Concomitant]
     Indication: PYREXIA
  3. IMIPENEM AND CILASTATIN SODIUM [Concomitant]

REACTIONS (1)
  - LYMPHOMA [None]
